FAERS Safety Report 8695053 (Version 2)
Quarter: 2014Q2

REPORT INFORMATION
  Report Type: Spontaneous
  Country: US (occurrence: US)
  Receive Date: 20120731
  Receipt Date: 20140402
  Transmission Date: 20141212
  Serious: Yes (Hospitalization, Other)
  Sender: FDA-Public Use
  Company Number: US-ROCHE-783965

PATIENT
  Age: 16 Year
  Sex: Male
  Weight: 81.72 kg

DRUGS (2)
  1. ACCUTANE [Suspect]
     Indication: ACNE CYSTIC
     Route: 065
     Dates: start: 199506, end: 199510
  2. BENADRYL (UNITED STATES) [Concomitant]

REACTIONS (10)
  - Abscess rupture [Unknown]
  - Crohn^s disease [Unknown]
  - Inflammatory bowel disease [Unknown]
  - Stress [Unknown]
  - Anal fistula [Unknown]
  - Anal fissure [Unknown]
  - Suicidal ideation [Unknown]
  - Pruritus [Unknown]
  - Irritable bowel syndrome [Unknown]
  - Rash erythematous [Unknown]
